FAERS Safety Report 5792471-3 (Version None)
Quarter: 2008Q2

REPORT INFORMATION
  Report Type: 
  Country: None (occurrence: None)
  Receive Date: 20080623
  Receipt Date: 20080610
  Transmission Date: 20081010
  Serious: Yes (Hospitalization, Other)
  Sender: FDA-Public Use
  Company Number: 2008BI005519

PATIENT
  Age: 42 Year
  Sex: Female

DRUGS (9)
  1. TYSABRI [Suspect]
     Indication: MULTIPLE SCLEROSIS
     Dosage: 300 MG;QM;IV
     Route: 042
     Dates: start: 20071016
  2. ATIVAN [Concomitant]
  3. DIAZEPAM [Concomitant]
  4. CELEXA [Concomitant]
  5. PREMARIN [Concomitant]
  6. TRAMADOL HCL [Concomitant]
  7. NAPROSYN [Concomitant]
  8. CLONIDINE [Concomitant]
  9. LISINOPRIL [Concomitant]

REACTIONS (16)
  - AGITATION [None]
  - ANXIETY [None]
  - ASPIRATION [None]
  - BLOOD GLUCOSE ABNORMAL [None]
  - CANDIDA PNEUMONIA [None]
  - CHOLECYSTITIS INFECTIVE [None]
  - CONVULSION [None]
  - CULTURE POSITIVE [None]
  - DRUG WITHDRAWAL SYNDROME [None]
  - GALLBLADDER DISORDER [None]
  - MALNUTRITION [None]
  - MULTIPLE SCLEROSIS RELAPSE [None]
  - RESPIRATORY FAILURE [None]
  - SEPSIS [None]
  - STAPHYLOCOCCAL INFECTION [None]
  - URINARY TRACT INFECTION FUNGAL [None]
